FAERS Safety Report 4733377-8 (Version None)
Quarter: 2005Q3

REPORT INFORMATION
  Report Type: 
  Country: None (occurrence: None)
  Receive Date: 20050801
  Receipt Date: 20050801
  Transmission Date: 20060218
  Serious: Yes (Hospitalization)
  Sender: FDA-Public Use
  Company Number: None

PATIENT
  Age: 73 Year
  Sex: Male

DRUGS (11)
  1. FUROSEMIDE [Suspect]
     Indication: HYPERTENSION
     Dosage: 40 MG BID
     Dates: start: 19980701
  2. COLCHICINE [Concomitant]
  3. GLIPIZIDE [Concomitant]
  4. GUAIFENESIN [Concomitant]
  5. POTASSIUM CHLORIDE [Concomitant]
  6. SALSALATE [Concomitant]
  7. ASPIRIN [Concomitant]
  8. METOPROLOL [Concomitant]
  9. PAROXETINE [Concomitant]
  10. IRBESARTAN [Concomitant]
  11. TAMSULOSIN [Concomitant]

REACTIONS (1)
  - HYPOTENSION [None]
